FAERS Safety Report 6368944-1 (Version None)
Quarter: 2009Q3

REPORT INFORMATION
  Report Type: 
  Country: None (occurrence: None)
  Receive Date: 20090922
  Receipt Date: 20090909
  Transmission Date: 20100115
  Serious: Yes (Hospitalization, Other)
  Sender: FDA-Public Use
  Company Number: CA-PFIZER INC-2009256146

PATIENT
  Age: 62 Year

DRUGS (10)
  1. CHAMPIX [Suspect]
     Indication: SMOKING CESSATION THERAPY
     Dosage: 1 MG, 2X/DAY
     Dates: start: 20090501, end: 20090723
  2. CHAMPIX [Suspect]
     Dosage: 1 MG, 1X/DAY
     Dates: start: 20090724, end: 20090730
  3. HYDROCHLOROTHIAZIDE [Concomitant]
     Indication: HYPERTENSION
     Dosage: 25 MG, 1X/DAY
     Route: 048
     Dates: start: 20090707, end: 20090811
  4. LORAZEPAM [Concomitant]
     Indication: SLEEP DISORDER
     Dosage: 1 MG, 1X/DAY (BEDTIME)
     Route: 048
     Dates: start: 20090702, end: 20090811
  5. VERAPAMIL [Concomitant]
     Dosage: 120 MG, 1X/DAY (BEDTIME)
     Route: 048
  6. VERAPAMIL HYDROCHLORIDE [Concomitant]
     Dosage: 240 MG, 1X/DAY (MORNING)
     Route: 048
  7. AMITRIPTYLINE HYDROCHLORIDE [Concomitant]
     Indication: HEADACHE
     Dosage: 50MGX2, 1X/DAY (BEDTIME)
     Dates: start: 20090123
  8. MOBICOX [Concomitant]
     Indication: PAIN
     Dosage: 7.5 MG, 1X/DAY
     Route: 048
  9. FLONASE [Concomitant]
     Dosage: 500MCGX2, 2X/DAY
     Route: 055
     Dates: start: 20080404
  10. MARIJUANA [Concomitant]
     Indication: FIBROMYALGIA
     Dosage: UNK
     Dates: end: 20090730

REACTIONS (8)
  - ACUTE PSYCHOSIS [None]
  - AGITATION [None]
  - CONFUSIONAL STATE [None]
  - CRYING [None]
  - DRUG WITHDRAWAL SYNDROME [None]
  - HYPOMANIA [None]
  - INSOMNIA [None]
  - VERBAL ABUSE [None]
